FAERS Safety Report 6551289-4 (Version None)
Quarter: 2010Q1

REPORT INFORMATION
  Report Type: 
  Country: None (occurrence: None)
  Receive Date: 20100126
  Receipt Date: 20100117
  Transmission Date: 20100710
  Serious: Yes (Other)
  Sender: FDA-Public Use
  Company Number: US-RB-001102-10

PATIENT
  Age: 23 Year
  Sex: Male

DRUGS (1)
  1. MUCINEX D [Suspect]
     Route: 048
     Dates: start: 20100115

REACTIONS (4)
  - AGITATION [None]
  - INSOMNIA [None]
  - MUSCLE TWITCHING [None]
  - TACHYCARDIA [None]
